FAERS Safety Report 10086697 (Version 3)
Quarter: 2014Q2

REPORT INFORMATION
  Report Type: Spontaneous
  Country: CA (occurrence: CA)
  Receive Date: 20140418
  Receipt Date: 20140507
  Transmission Date: 20141212
  Serious: Yes (Other)
  Sender: FDA-Public Use
  Company Number: CA-ELI_LILLY_AND_COMPANY-CA201312004717

PATIENT
  Age: 56 Year
  Sex: Female

DRUGS (6)
  1. ADCIRCA [Suspect]
     Indication: PRODUCT USED FOR UNKNOWN INDICATION
     Dosage: 1 DF, QD
     Dates: start: 20131204
  2. VOLIBRIS [Suspect]
     Indication: PULMONARY ARTERIAL HYPERTENSION
     Dosage: 5 MG, QD
     Route: 048
     Dates: start: 20140404
  3. ZOPICLONE [Concomitant]
  4. PREMARIN [Concomitant]
  5. ELTROXIN [Concomitant]
     Dosage: UNK
  6. PAROXETINE [Concomitant]
     Dosage: UNK

REACTIONS (4)
  - Visual impairment [Not Recovered/Not Resolved]
  - Headache [Recovered/Resolved]
  - Headache [Not Recovered/Not Resolved]
  - Abdominal distension [Not Recovered/Not Resolved]
